FAERS Safety Report 7573605-7 (Version None)
Quarter: 2011Q2

REPORT INFORMATION
  Report Type: 
  Country: None (occurrence: None)
  Receive Date: 20110621
  Receipt Date: 20110607
  Transmission Date: 20111010
  Serious: Yes (Other)
  Sender: FDA-Public Use
  Company Number: 9039997-2011-00007

PATIENT
  Age: 64 Year
  Sex: Male

DRUGS (3)
  1. MULTI-VITAMIN [Concomitant]
  2. LERVULAN KERASLICK TOPICAL SOLUTION, 20% [Suspect]
     Indication: ACTINIC KERATOSIS
     Dosage: 20%, ONCE, TOPICAL
     Route: 061
     Dates: start: 20110110
  3. ASPIRIN [Concomitant]

REACTIONS (3)
  - CHEMICAL INJURY [None]
  - RADIATION SKIN INJURY [None]
  - SCAR [None]
